FAERS Safety Report 9495388 (Version 1)
Quarter: 2013Q3

REPORT INFORMATION
  Report Type: Spontaneous
  Country: FI (occurrence: FI)
  Receive Date: 20130903
  Receipt Date: 20130903
  Transmission Date: 20140515
  Serious: Yes (Hospitalization)
  Sender: FDA-Public Use
  Company Number: FI-GLAXOSMITHKLINE-B0919660A

PATIENT
  Age: 62 Year
  Sex: Female

DRUGS (7)
  1. VOTRIENT [Suspect]
     Indication: RENAL CANCER
     Dosage: 800MG PER DAY
     Route: 048
     Dates: start: 20130716, end: 20130731
  2. DIFORMIN RETARD [Concomitant]
     Dosage: 3G PER DAY
     Route: 048
  3. SIMVASTATIN [Concomitant]
     Dosage: 20MG PER DAY
     Route: 048
  4. PRIMASPAN [Concomitant]
     Dosage: 100MG PER DAY
  5. KLEXANE [Concomitant]
     Dosage: 40MG PER DAY
     Route: 058
  6. LISINOPRIL [Concomitant]
     Dosage: 10MG PER DAY
     Route: 048
  7. CARVEDILOL [Concomitant]
     Dosage: 25MG PER DAY

REACTIONS (1)
  - Delirium [Not Recovered/Not Resolved]
